FAERS Safety Report 6468246-9 (Version None)
Quarter: 2009Q4

REPORT INFORMATION
  Report Type: 
  Country: None (occurrence: None)
  Receive Date: 20091127
  Receipt Date: 20091117
  Transmission Date: 20100525
  Serious: Yes (Hospitalization, Other)
  Sender: FDA-Public Use
  Company Number: 435686

PATIENT
  Age: 45 Year
  Sex: Female

DRUGS (9)
  1. ERYTHROMYCIN [Suspect]
     Indication: ANTIBIOTIC PROPHYLAXIS
  2. DOXORUBICIN HCL [Suspect]
     Indication: BREAST CANCER METASTATIC
     Dosage: 50 MG/M2
  3. OMEPRAZOLE [Suspect]
     Indication: DRUG USE FOR UNKNOWN INDICATION
  4. DOCETAXEL [Suspect]
     Indication: BREAST CANCER METASTATIC
     Dosage: 75 MG/M2
  5. DEXAMETHASONE TAB [Concomitant]
  6. GRANISETRON HCL [Concomitant]
  7. MORPHINE SULFATE [Concomitant]
  8. IBUPROFEN [Concomitant]
  9. METOCLOPRAMIDE [Concomitant]

REACTIONS (14)
  - BLOOD ALBUMIN DECREASED [None]
  - BLOOD ALKALINE PHOSPHATASE INCREASED [None]
  - BLOOD BILIRUBIN INCREASED [None]
  - DRUG INTERACTION [None]
  - FEBRILE NEUTROPENIA [None]
  - GAMMA-GLUTAMYLTRANSFERASE INCREASED [None]
  - HAEMATEMESIS [None]
  - JAUNDICE CHOLESTATIC [None]
  - LIVER FUNCTION TEST ABNORMAL [None]
  - MOUTH ULCERATION [None]
  - PSEUDOMEMBRANOUS COLITIS [None]
  - RASH ERYTHEMATOUS [None]
  - RASH MACULO-PAPULAR [None]
  - THERAPEUTIC RESPONSE DECREASED [None]
